FAERS Safety Report 7621738-9 (Version None)
Quarter: 2011Q3

REPORT INFORMATION
  Report Type: 
  Country: None (occurrence: None)
  Receive Date: 20110719
  Receipt Date: 20110712
  Transmission Date: 20111222
  Serious: Yes (Life-Threatening, Hospitalization, Disabling)
  Sender: FDA-Public Use
  Company Number: US-ASTRAZENECA-2011SE41405

PATIENT
  Age: 88 Year
  Sex: Male

DRUGS (5)
  1. SEROQUEL [Suspect]
     Dosage: ONCE DAILY
     Route: 048
  2. DEXAMETHASONE SODIUM PHOSPHATE [Suspect]
     Indication: ANTIINFLAMMATORY THERAPY
     Dosage: 4 MG/ML ONCE
     Route: 042
     Dates: start: 20110407, end: 20110407
  3. DILAUDID [Suspect]
     Route: 065
  4. FORADIL [Concomitant]
     Dosage: AS NEEDED
  5. GABAPENTIN [Suspect]
     Route: 065

REACTIONS (6)
  - CONFUSIONAL STATE [None]
  - FATIGUE [None]
  - PSYCHOTIC DISORDER [None]
  - OXYGEN CONSUMPTION INCREASED [None]
  - APHASIA [None]
  - OXYGEN SATURATION DECREASED [None]
